FAERS Safety Report 13386295 (Version 1)
Quarter: 2017Q1

REPORT INFORMATION
  Report Type: Spontaneous
  Country: CA (occurrence: CA)
  Receive Date: 20170330
  Receipt Date: 20170330
  Transmission Date: 20170429
  Serious: Yes (Death, Hospitalization, Other)
  Sender: FDA-Public Use
  Company Number: CA-009507513-1703CAN009719

PATIENT
  Age: 57 Year
  Sex: Male

DRUGS (18)
  1. LANSOPRAZOLE. [Concomitant]
     Active Substance: LANSOPRAZOLE
  2. SENNA [Concomitant]
     Active Substance: SENNA LEAF\SENNOSIDES\SENNOSIDES A AND B
  3. METOCLOPRAMIDE. [Concomitant]
     Active Substance: METOCLOPRAMIDE
  4. PEGINTERFERON ALFA-2B [Concomitant]
     Active Substance: PEGINTERFERON ALFA-2B
  5. LORAZEPAM. [Concomitant]
     Active Substance: LORAZEPAM
  6. COLACE [Concomitant]
     Active Substance: DOCUSATE SODIUM
  7. BISACODYL. [Concomitant]
     Active Substance: BISACODYL
  8. ZOPICLONE [Concomitant]
     Active Substance: ZOPICLONE
  9. IVERMECTIN. [Suspect]
     Active Substance: IVERMECTIN
     Indication: STRONGYLOIDIASIS
     Dosage: 12 MG X 7 DAYS
     Route: 048
     Dates: start: 20170317
  10. ASPIRIN. [Concomitant]
     Active Substance: ASPIRIN
  11. COLCHICINE. [Concomitant]
     Active Substance: COLCHICINE
  12. GRAVOL [Concomitant]
     Active Substance: DIMENHYDRINATE
  13. ACETAMINOPHEN. [Concomitant]
     Active Substance: ACETAMINOPHEN
  14. VITAMINS (UNSPECIFIED) [Concomitant]
     Active Substance: VITAMINS
  15. DARBEPOETIN ALFA [Concomitant]
     Active Substance: DARBEPOETIN ALFA
  16. LACTULOSE. [Concomitant]
     Active Substance: LACTULOSE
  17. METHYLPREDNISOLONE. [Concomitant]
     Active Substance: METHYLPREDNISOLONE
     Dosage: 250 MG, UNK
     Route: 042
  18. HEPARIN [Concomitant]
     Active Substance: HEPARIN SODIUM

REACTIONS (2)
  - Tropical infectious disease [Unknown]
  - Death [Fatal]

NARRATIVE: CASE EVENT DATE: 20170317
